FAERS Safety Report 6809675-0 (Version None)
Quarter: 2010Q2

REPORT INFORMATION
  Report Type: 
  Country: None (occurrence: None)
  Receive Date: 20100630
  Receipt Date: 20100618
  Transmission Date: 20101027
  Serious: Yes (Other)
  Sender: FDA-Public Use
  Company Number: CA-PFIZER INC-2010068090

PATIENT
  Age: 19 Year
  Sex: Male
  Weight: 88.4 kg

DRUGS (4)
  1. ZELDOX [Suspect]
     Indication: AFFECTIVE DISORDER
     Dosage: 40 MG, 2X/DAY
     Route: 048
     Dates: start: 20100422, end: 20100424
  2. ZELDOX [Suspect]
     Indication: BIPOLAR DISORDER
  3. HYDRASENSE [Concomitant]
     Indication: RHINITIS
     Dosage: AS NEEDED
     Route: 045
  4. NASONEX [Concomitant]
     Indication: RHINITIS
     Dosage: AS NEEDED
     Route: 045

REACTIONS (8)
  - DIZZINESS [None]
  - DYSKINESIA [None]
  - DYSPHONIA [None]
  - DYSPNOEA [None]
  - ERYTHEMA [None]
  - FATIGUE [None]
  - SWOLLEN TONGUE [None]
  - TONGUE DISCOLOURATION [None]
